FAERS Safety Report 7654633-X (Version None)
Quarter: 2011Q3

REPORT INFORMATION
  Report Type: 
  Country: None (occurrence: None)
  Receive Date: 20110803
  Receipt Date: 20110727
  Transmission Date: 20111222
  Serious: Yes (Death)
  Sender: FDA-Public Use
  Company Number: US-CELGENEUS-163-21880-11080320

PATIENT
  Sex: Male

DRUGS (2)
  1. REVLIMID [Suspect]
     Dosage: 5 MILLIGRAM
     Dates: start: 20101007
  2. REVLIMID [Suspect]
     Indication: MULTIPLE MYELOMA
     Dosage: 10 MILLIGRAM
     Dates: start: 20080310, end: 20100401

REACTIONS (1)
  - DEATH [None]
